FAERS Safety Report 8721028 (Version 2)
Quarter: 2012Q4

REPORT INFORMATION
  Report Type: 
  Country: US (occurrence: US)
  Receive Date: 20120813
  Receipt Date: 20120926
  Transmission Date: 20130627
  Serious: Yes (Other)
  Sender: FDA-Public Use
  Company Number: PHEH2012US015053

PATIENT
  Sex: Male
  Weight: 124.72 kg

DRUGS (9)
  1. DIOVAN [Suspect]
     Indication: HYPERTENSION
     Dosage: 320 mg, UNK
     Route: 048
     Dates: start: 2009
  2. HYDROCHLOROTHIAZIDE [Concomitant]
     Indication: HYPERTENSION
     Dosage: UNK UKN, UNK
     Dates: start: 2009
  3. CARDIZEM [Concomitant]
     Indication: HYPERTENSION
     Dosage: UNK UKN, UNK
     Dates: start: 2009
  4. ATENOLOL [Concomitant]
     Indication: HYPERTENSION
     Dosage: UNK UKN, UNK
     Dates: start: 2009
  5. TRAZODONE [Concomitant]
     Dosage: UNK UKN, UNK
  6. SULFAMETHOXAZOLE [Concomitant]
     Dosage: UNK UKN, UNK
  7. OXYCODONE [Concomitant]
     Dosage: UNK UKN, UNK
  8. ASA [Concomitant]
     Indication: HYPERTENSION
  9. ZOCOR ^DIECKMANN^ [Concomitant]
     Indication: HYPERLIPIDAEMIA
     Dates: start: 2009

REACTIONS (3)
  - Road traffic accident [Recovered/Resolved with Sequelae]
  - Head injury [Recovered/Resolved with Sequelae]
  - Rhinitis [Unknown]
